FAERS Safety Report 9855163 (Version 1)
Quarter: 2013Q4

REPORT INFORMATION
  Report Type: Spontaneous
  Country: US (occurrence: None)
  Receive Date: 20131226
  Receipt Date: 20131226
  Transmission Date: 20140711
  Serious: Yes (Other)
  Sender: FDA-Public Use
  Company Number: PHEH2013US015547

PATIENT
  Sex: 0

DRUGS (2)
  1. GILENYA (FINGOLIMOD) CAPSULE [Suspect]
     Indication: MULTIPLE SCLEROSIS
     Route: 048
  2. IMIQUIMOD [Suspect]
     Indication: PAPILLOMA VIRAL INFECTION

REACTIONS (1)
  - Papilloma viral infection [None]
